FAERS Safety Report 8162197-X (Version None)
Quarter: 2012Q1

REPORT INFORMATION
  Report Type: 
  Country: None (occurrence: None)
  Receive Date: 20120224
  Receipt Date: 20111221
  Transmission Date: 20120608
  Serious: No
  Sender: FDA-Public Use
  Company Number: US-BRISTOL-MYERS SQUIBB COMPANY-16311961

PATIENT
  Age: 4 Decade
  Sex: Male

DRUGS (2)
  1. METFORMIN HCL [Suspect]
  2. ONGLYZA [Suspect]

REACTIONS (1)
  - VOMITING [None]
